FAERS Safety Report 7598194-2 (Version None)
Quarter: 2011Q3

REPORT INFORMATION
  Report Type: 
  Country: None (occurrence: None)
  Receive Date: 20110708
  Receipt Date: 20110701
  Transmission Date: 20111222
  Serious: Yes (Hospitalization, Other)
  Sender: FDA-Public Use
  Company Number: DE-ABBOTT-10P-062-0643725-00

PATIENT
  Age: 46 Year
  Sex: Male
  Weight: 74 kg

DRUGS (5)
  1. ACTONEL [Concomitant]
     Indication: OSTEOPOROSIS
     Dates: start: 20091001
  2. LEVOMETHADON [Concomitant]
     Indication: PRODUCT USED FOR UNKNOWN INDICATION
  3. ZENTROPIL [Concomitant]
     Indication: EPILEPSY
     Dates: start: 20040101
  4. KALETRA [Suspect]
     Indication: HIV INFECTION
     Dosage: 100MG/25MG 4 PER DAY
     Dates: start: 20090901
  5. TRUVADA [Concomitant]
     Indication: HIV INFECTION
     Dosage: 200MG/245MG 1 PER DAY
     Dates: start: 20090901

REACTIONS (9)
  - PNEUMONIA STREPTOCOCCAL [None]
  - THROMBOCYTOPENIA [None]
  - FALL [None]
  - RADIUS FRACTURE [None]
  - RIB FRACTURE [None]
  - PNEUMONIA [None]
  - RENAL FAILURE ACUTE [None]
  - CHRONIC OBSTRUCTIVE PULMONARY DISEASE [None]
  - PULMONARY SEPSIS [None]
